FAERS Safety Report 24300051 (Version 1)
Quarter: 2024Q3

REPORT INFORMATION
  Report Type: Spontaneous
  Country: CA (occurrence: CA)
  Receive Date: 20240909
  Receipt Date: 20240909
  Transmission Date: 20241016
  Serious: Yes (Hospitalization)
  Sender: JUBILANT
  Company Number: CA-JUBILANT CADISTA PHARMACEUTICALS-2024JUB00068

PATIENT
  Age: 61 Year
  Sex: Female

DRUGS (3)
  1. CARBAMAZEPINE [Suspect]
     Active Substance: CARBAMAZEPINE
  2. TRANDOLAPRIL [Concomitant]
     Active Substance: TRANDOLAPRIL
  3. ROSUVASTATIN [Concomitant]
     Active Substance: ROSUVASTATIN\ROSUVASTATIN CALCIUM

REACTIONS (4)
  - Encephalopathy [Recovering/Resolving]
  - Lactic acidosis [Unknown]
  - Overdose [Unknown]
  - Hypothermia [Unknown]
